FAERS Safety Report 4622946-1 (Version None)
Quarter: 2005Q1

REPORT INFORMATION
  Report Type: 
  Country: None (occurrence: None)
  Receive Date: 20050329
  Receipt Date: 20020701
  Transmission Date: 20050727
  Serious: No
  Sender: FDA-Public Use
  Company Number: 3877

PATIENT
  Age: 50 Year
  Sex: Male

DRUGS (8)
  1. CYTARABINE [Suspect]
     Dosage: 12 G IV
     Route: 042
     Dates: start: 20020205, end: 20020213
  2. FLUCLOXACILLIN [Suspect]
     Dosage: 4 G, IV
     Route: 042
     Dates: start: 20020208, end: 20020213
  3. ETOPOSIDE [Suspect]
     Dosage: 150 MG IV
     Route: 042
     Dates: start: 20020205, end: 20020211
  4. ALLOPURINOL [Concomitant]
  5. FELODIPINE [Concomitant]
  6. OMEPRAZOLE [Concomitant]
  7. GEMFIBROZIL [Concomitant]
  8. GLICLAZIDE [Concomitant]

REACTIONS (2)
  - FACE OEDEMA [None]
  - RASH [None]
